FAERS Safety Report 4885929-2 (Version None)
Quarter: 2006Q1

REPORT INFORMATION
  Report Type: 
  Country: None (occurrence: None)
  Receive Date: 20060117
  Receipt Date: 20060103
  Transmission Date: 20060701
  Serious: Yes (Life-Threatening)
  Sender: FDA-Public Use
  Company Number: GXKR2006NL00466

PATIENT
  Age: 27 Year
  Sex: Female

DRUGS (3)
  1. FLUOXETINE [Suspect]
     Indication: DEPRESSION
     Dosage: 20 MG, QD,ORAL
     Route: 048
     Dates: start: 20050225
  2. ALPRAZOLAM [Suspect]
     Indication: ANXIETY
     Dosage: 20 MG, QD, ORAL
     Route: 048
     Dates: start: 20050415
  3. BUSPIRONE HCL [Concomitant]

REACTIONS (4)
  - CONDITION AGGRAVATED [None]
  - DEPRESSION [None]
  - PERIPHERAL COLDNESS [None]
  - SUICIDAL IDEATION [None]
